FAERS Safety Report 15048455 (Version 2)
Quarter: 2018Q3

REPORT INFORMATION
  Report Type: Spontaneous
  Country: US (occurrence: US)
  Receive Date: 20180622
  Receipt Date: 20180703
  Transmission Date: 20181010
  Serious: Yes (Other)
  Sender: FDA-Public Use
  Company Number: US-HORIZON-VIM-1002-2018

PATIENT
  Age: 53 Year
  Sex: Male

DRUGS (6)
  1. VIMOVO [Suspect]
     Active Substance: ESOMEPRAZOLE MAGNESIUM\NAPROXEN
     Indication: PRODUCT USED FOR UNKNOWN INDICATION
     Dosage: 1 TABLET BID
     Dates: start: 20180323, end: 20180523
  2. AZATHIOPRINE. [Concomitant]
     Active Substance: AZATHIOPRINE
  3. BALSALAZIDE [Concomitant]
     Active Substance: BALSALAZIDE
  4. SIMVASTATIN. [Concomitant]
     Active Substance: SIMVASTATIN
  5. LISINOPRIL. [Concomitant]
     Active Substance: LISINOPRIL
  6. FARXIGA [Concomitant]
     Active Substance: DAPAGLIFLOZIN PROPANEDIOL

REACTIONS (2)
  - Abdominal discomfort [Recovered/Resolved]
  - Crohn^s disease [Recovered/Resolved]
